FAERS Safety Report 6195040-9 (Version None)
Quarter: 2009Q2

REPORT INFORMATION
  Report Type: 
  Country: None (occurrence: None)
  Receive Date: 20090515
  Receipt Date: 20090515
  Transmission Date: 20091009
  Serious: No
  Sender: FDA-Public Use
  Company Number: None

PATIENT
  Age: 55 Year
  Sex: Female

DRUGS (4)
  1. DEXAMETHASONE [Suspect]
     Indication: PHARYNGITIS
     Dosage: 10MG ONCE IV
     Route: 042
     Dates: start: 20090510
  2. DEXAMETHASONE [Suspect]
     Indication: TONSILLITIS
     Dosage: 10MG ONCE IV
     Route: 042
     Dates: start: 20090510
  3. ROCEPHIN [Concomitant]
  4. CLEOCIN [Concomitant]

REACTIONS (5)
  - CHEST PAIN [None]
  - INFUSION RELATED REACTION [None]
  - NAUSEA [None]
  - PRODUCT SUBSTITUTION ISSUE [None]
  - VOMITING [None]
